FAERS Safety Report 4446040-8 (Version None)
Quarter: 2004Q3

REPORT INFORMATION
  Report Type: 
  Country: None (occurrence: None)
  Receive Date: 20040907
  Receipt Date: 20040825
  Transmission Date: 20050211
  Serious: Yes (Hospitalization)
  Sender: FDA-Public Use
  Company Number: US-SHR-04-022678

PATIENT
  Age: 46 Year
  Sex: Female

DRUGS (4)
  1. BETASERON [Suspect]
     Indication: MULTIPLE SCLEROSIS
     Dosage: 2 MIU, EVERY 2D, SUBCUTANEOUS
     Route: 058
     Dates: start: 20040307, end: 20040323
  2. PREDNISONE [Concomitant]
  3. CARBAMAZEPINE [Concomitant]
  4. PROTONIX [Concomitant]

REACTIONS (6)
  - BLOOD POTASSIUM DECREASED [None]
  - CROHN'S DISEASE [None]
  - DIARRHOEA HAEMORRHAGIC [None]
  - GASTROINTESTINAL HAEMORRHAGE [None]
  - HAEMOGLOBIN DECREASED [None]
  - PLATELET COUNT INCREASED [None]
